FAERS Safety Report 8438699-5 (Version None)
Quarter: 2012Q2

REPORT INFORMATION
  Report Type: 
  Country: None (occurrence: None)
  Receive Date: 20120611
  Receipt Date: 20120611
  Transmission Date: 20120825
  Serious: Yes (Hospitalization)
  Sender: FDA-Public Use
  Company Number: None

PATIENT
  Sex: Female
  Weight: 68.5 kg

DRUGS (5)
  1. XANAX [Concomitant]
  2. LORTAB [Concomitant]
  3. EFFEXOR [Concomitant]
  4. MICROZIDE [Concomitant]
  5. CISPLATIN [Suspect]
     Dosage: 432 MG

REACTIONS (3)
  - HIP FRACTURE [None]
  - SYNCOPE [None]
  - FALL [None]
